FAERS Safety Report 7885489-8 (Version None)
Quarter: 2011Q4

REPORT INFORMATION
  Report Type: 
  Country: None (occurrence: None)
  Receive Date: 20111102
  Receipt Date: 20111025
  Transmission Date: 20120403
  Serious: Yes (Hospitalization)
  Sender: FDA-Public Use
  Company Number: FR-GILEAD-2011-0038687

PATIENT
  Sex: Male

DRUGS (10)
  1. FOLINORAL [Concomitant]
     Route: 048
     Dates: start: 20101001
  2. PREZISTA [Concomitant]
     Indication: HIV INFECTION
     Dosage: 1200 MG, UNK
     Route: 048
     Dates: start: 20101122
  3. NORVIR [Concomitant]
     Indication: HIV INFECTION
     Dosage: 200 MG, UNK
     Route: 048
     Dates: start: 20101122
  4. BARACLUDE                          /03597801/ [Concomitant]
     Dosage: UNK
  5. LEVOTHYROXINE SODIUM [Concomitant]
     Route: 048
  6. TRUVADA [Suspect]
     Indication: HIV INFECTION
     Dosage: UNK
     Route: 048
     Dates: start: 20101122, end: 20110101
  7. EPIVIR [Concomitant]
     Dosage: UNK
  8. ISENTRESS [Concomitant]
     Indication: HIV INFECTION
     Route: 048
     Dates: start: 20101122
  9. BACTRIM F [Concomitant]
     Route: 048
     Dates: start: 20101001
  10. ZOLPIDEM [Concomitant]
     Route: 048
     Dates: start: 20101001

REACTIONS (2)
  - PROTEINURIA [None]
  - RENAL FAILURE [None]
